FAERS Safety Report 10484481 (Version 1)
Quarter: 2014Q3

REPORT INFORMATION
  Report Type: Spontaneous
  Country: FR (occurrence: FR)
  Receive Date: 20140930
  Receipt Date: 20140930
  Transmission Date: 20150326
  Serious: Yes (Hospitalization)
  Sender: FDA-Public Use
  Company Number: FR-SA-2014SA133994

PATIENT
  Age: 59 Year
  Sex: Male

DRUGS (5)
  1. OMNIPAQUE [Suspect]
     Active Substance: IOHEXOL
     Indication: SCAN
     Route: 042
     Dates: start: 20140709, end: 20140709
  2. PREVISCAN [Suspect]
     Active Substance: FLUINDIONE
     Route: 048
     Dates: end: 20140718
  3. BISOCE [Suspect]
     Active Substance: BISOPROLOL
     Route: 048
     Dates: end: 20140718
  4. TRITACE [Suspect]
     Active Substance: RAMIPRIL
     Route: 048
     Dates: end: 20140718
  5. LASILIX SPECIAL [Suspect]
     Active Substance: FUROSEMIDE
     Route: 048
     Dates: start: 20140507

REACTIONS (3)
  - Ascites [Recovering/Resolving]
  - Renal failure acute [Recovering/Resolving]
  - Oedema peripheral [Recovering/Resolving]

NARRATIVE: CASE EVENT DATE: 201407
